FAERS Safety Report 20572784 (Version 1)
Quarter: 2022Q1

REPORT INFORMATION
  Report Type: Spontaneous
  Country: US (occurrence: None)
  Receive Date: 20220309
  Receipt Date: 20220309
  Transmission Date: 20220424
  Serious: Yes (Other)
  Sender: FDA-Public Use
  Company Number: None

PATIENT
  Age: 73 Year
  Sex: Male

DRUGS (1)
  1. APIXABAN [Suspect]
     Active Substance: APIXABAN

REACTIONS (6)
  - Seizure [None]
  - COVID-19 [None]
  - Thrombocytopenia [None]
  - Subdural haemorrhage [None]
  - Subdural haematoma [None]
  - Unresponsive to stimuli [None]
